FAERS Safety Report 13418033 (Version 1)
Quarter: 2017Q2

REPORT INFORMATION
  Report Type: Spontaneous
  Country: US (occurrence: US)
  Receive Date: 20170407
  Receipt Date: 20170407
  Transmission Date: 20170830
  Serious: No
  Sender: FDA-Public Use
  Company Number: US-BIOGEN-2017BI00381041

PATIENT
  Sex: Female
  Weight: 91 kg

DRUGS (1)
  1. AVONEX [Suspect]
     Active Substance: INTERFERON BETA-1A
     Indication: MULTIPLE SCLEROSIS
     Route: 030
     Dates: end: 201507

REACTIONS (6)
  - Intentional product misuse [Unknown]
  - Influenza like illness [Unknown]
  - Injection site pain [Unknown]
  - Procedural anxiety [Unknown]
  - Memory impairment [Unknown]
  - Pain in extremity [Unknown]
